FAERS Safety Report 8777123 (Version 1)
Quarter: 2012Q4

REPORT INFORMATION
  Report Type: 
  Country: CA (occurrence: CA)
  Receive Date: 20120911
  Receipt Date: 20120911
  Transmission Date: 20130627
  Serious: Yes (Other)
  Sender: FDA-Public Use
  Company Number: CA-US-EMD SERONO, INC.-7159355

PATIENT
  Sex: Male

DRUGS (2)
  1. REBIF [Suspect]
     Indication: PRODUCT USED FOR UNKNOWN INDICATION
     Route: 058
     Dates: start: 20090922, end: 20101207
  2. REBIF [Suspect]
     Dosage: Multidose
     Route: 058
     Dates: start: 20111203

REACTIONS (1)
  - Type 2 diabetes mellitus [Unknown]
